FAERS Safety Report 10478419 (Version 2)
Quarter: 2014Q4

REPORT INFORMATION
  Report Type: Spontaneous
  Country: JP (occurrence: JP)
  Receive Date: 20140926
  Receipt Date: 20141022
  Transmission Date: 20150528
  Serious: Yes (Life-Threatening)
  Sender: FDA-Public Use
  Company Number: JP-MYLANLABS-2014M1005302

PATIENT
  Age: 28 Year
  Sex: Male

DRUGS (7)
  1. CICLOSPORIN CAPSULES 10 MG ^MYLAN^ [Suspect]
     Active Substance: CYCLOSPORINE
     Indication: OFF LABEL USE
  2. DEXAMETHASONE. [Suspect]
     Active Substance: DEXAMETHASONE
     Indication: HISTIOCYTOSIS HAEMATOPHAGIC
     Dosage: 16.5MG/DAY
     Route: 048
  3. ETOPOSIDE. [Suspect]
     Active Substance: ETOPOSIDE
     Indication: HISTIOCYTOSIS HAEMATOPHAGIC
  4. CICLOSPORIN CAPSULES 10 MG ^MYLAN^ [Suspect]
     Active Substance: CYCLOSPORINE
     Indication: HISTIOCYTOSIS HAEMATOPHAGIC
     Dosage: 120MG/DAY
     Route: 065
     Dates: end: 20120714
  5. ETOPOSIDE. [Suspect]
     Active Substance: ETOPOSIDE
     Indication: OFF LABEL USE
  6. ETOPOSIDE. [Suspect]
     Active Substance: ETOPOSIDE
     Dosage: 240MG/2WEEK
     Route: 065
  7. ITRACONAZOLE. [Concomitant]
     Active Substance: ITRACONAZOLE
     Indication: ANTIFUNGAL PROPHYLAXIS
     Dosage: 200MG/DAY
     Route: 048

REACTIONS (3)
  - Wound [Recovered/Resolved]
  - Condition aggravated [Recovered/Resolved]
  - Fungal infection [Recovered/Resolved]
